FAERS Safety Report 10836046 (Version 1)
Quarter: 2015Q1

REPORT INFORMATION
  Report Type: Spontaneous
  Country: FR (occurrence: FR)
  Receive Date: 20150219
  Receipt Date: 20150219
  Transmission Date: 20150721
  Serious: Yes (Hospitalization)
  Sender: FDA-Public Use
  Company Number: FR-BIOMARINAP-FR-2015-105394

PATIENT
  Age: 5 Year
  Sex: Male

DRUGS (2)
  1. NAGLAZYME [Suspect]
     Active Substance: GALSULFASE
     Indication: MUCOPOLYSACCHARIDOSIS VI
     Dosage: 20 MG, UNK
     Route: 042
     Dates: start: 20121003
  2. BIONOLYTE GLUCOSE [Concomitant]
     Indication: PRODUCT USED FOR UNKNOWN INDICATION
     Dosage: 500 ML, UNK
     Route: 042

REACTIONS (2)
  - Medication error [Recovered/Resolved]
  - Wrong technique in drug usage process [None]

NARRATIVE: CASE EVENT DATE: 20150128
